FAERS Safety Report 7271040-2 (Version None)
Quarter: 2011Q1

REPORT INFORMATION
  Report Type: 
  Country: None (occurrence: None)
  Receive Date: 20110202
  Receipt Date: 20110126
  Transmission Date: 20110831
  Serious: Yes (Other)
  Sender: FDA-Public Use
  Company Number: US-ASTRAZENECA-2011SE02662

PATIENT
  Age: 63 Year
  Sex: Female

DRUGS (2)
  1. ARIMIDEX [Concomitant]
  2. SEROQUEL [Suspect]
     Indication: BIPOLAR DISORDER
     Route: 048

REACTIONS (2)
  - NEOPLASM MALIGNANT [None]
  - CEREBROVASCULAR ACCIDENT [None]
